FAERS Safety Report 6860938-2 (Version None)
Quarter: 2010Q3

REPORT INFORMATION
  Report Type: 
  Country: None (occurrence: None)
  Receive Date: 20100715
  Receipt Date: 20100708
  Transmission Date: 20110219
  Serious: Yes (Other)
  Sender: FDA-Public Use
  Company Number: 2010SP021380

PATIENT
  Age: 68 Year
  Sex: Male

DRUGS (8)
  1. REMERON [Suspect]
     Indication: PERSONALITY DISORDER
     Dosage: PO
     Route: 048
     Dates: end: 20090203
  2. REMERON [Suspect]
     Indication: PSYCHOTIC DISORDER
     Dosage: PO
     Route: 048
     Dates: end: 20090203
  3. SEROQUEL [Suspect]
     Indication: PERSONALITY DISORDER
     Dosage: 1.5 DF; BID; PO
     Route: 048
     Dates: end: 20090203
  4. SEROQUEL [Suspect]
     Indication: PSYCHOTIC DISORDER
     Dosage: 1.5 DF; BID; PO
     Route: 048
     Dates: end: 20090203
  5. PRADIF [Concomitant]
  6. AVODART [Concomitant]
  7. PANTOZOL [Concomitant]
  8. VALPROATE SODIUM [Concomitant]

REACTIONS (8)
  - ACUTE PRERENAL FAILURE [None]
  - BLOOD CHLORIDE DECREASED [None]
  - BLOOD PRESSURE INCREASED [None]
  - BLOOD SODIUM INCREASED [None]
  - DEHYDRATION [None]
  - ELECTROCARDIOGRAM QT PROLONGED [None]
  - GASTROENTERITIS [None]
  - OFF LABEL USE [None]
